FAERS Safety Report 19400528 (Version 5)
Quarter: 2021Q4

REPORT INFORMATION
  Report Type: Spontaneous
  Country: US (occurrence: US)
  Receive Date: 20210610
  Receipt Date: 20211111
  Transmission Date: 20220303
  Serious: No
  Sender: FDA-Public Use
  Company Number: US-ALLERGAN-2120270US

PATIENT
  Sex: Female

DRUGS (1)
  1. DURYSTA [Suspect]
     Active Substance: BIMATOPROST
     Indication: Product used for unknown indication
     Dosage: 10 ?G, SINGLE
     Route: 031

REACTIONS (1)
  - Device malfunction [Unknown]
